FAERS Safety Report 16297737 (Version 2)
Quarter: 2019Q2

REPORT INFORMATION
  Report Type: Report from Study
  Country: None (occurrence: US)
  Receive Date: 20190510
  Receipt Date: 20190518
  Transmission Date: 20190711
  Serious: Yes (Hospitalization, Other)
  Sender: FDA-Public Use
  Company Number: US-ABBVIE-19K-163-2618886-00

PATIENT
  Sex: Female
  Weight: 66.74 kg

DRUGS (4)
  1. VENCLEXTA [Suspect]
     Active Substance: VENETOCLAX
     Dosage: DAY TWO
     Route: 048
     Dates: start: 201812, end: 201812
  2. LEVAQUIN [Concomitant]
     Active Substance: LEVOFLOXACIN
     Indication: PRODUCT USED FOR UNKNOWN INDICATION
  3. VENCLEXTA [Suspect]
     Active Substance: VENETOCLAX
     Indication: ACUTE LEUKAEMIA
     Dosage: DAY ONE
     Route: 048
     Dates: start: 201812, end: 201812
  4. VENCLEXTA [Suspect]
     Active Substance: VENETOCLAX
     Dosage: DAY THREE
     Route: 048
     Dates: start: 201812, end: 201812

REACTIONS (3)
  - White blood cell count decreased [Recovering/Resolving]
  - Intentional product use issue [Unknown]
  - Pneumonia [Recovered/Resolved]
